FAERS Safety Report 15717948 (Version 3)
Quarter: 2019Q2

REPORT INFORMATION
  Report Type: Spontaneous
  Country: US (occurrence: US)
  Receive Date: 20181213
  Receipt Date: 20190628
  Transmission Date: 20190711
  Serious: Yes (Other)
  Sender: FDA-Public Use
  Company Number: US-SA-2018SA336522

PATIENT
  Age: 51 Year
  Sex: Female
  Weight: 100.6 kg

DRUGS (7)
  1. TAXOTERE [Suspect]
     Active Substance: DOCETAXEL
     Dosage: 150 MG, Q3W
     Route: 042
     Dates: start: 20120208, end: 20120208
  2. HERCEPTIN [Concomitant]
     Active Substance: TRASTUZUMAB
     Dosage: 600 MG
  3. TAXOTERE [Suspect]
     Active Substance: DOCETAXEL
     Indication: BREAST CANCER FEMALE
     Dosage: 150 MG, Q3W
     Route: 042
     Dates: start: 20111005, end: 20111005
  4. VINDESINE [Concomitant]
     Active Substance: VINDESINE
  5. PARAPLATIN [Concomitant]
     Active Substance: CARBOPLATIN
     Dosage: 6 AUC, UNK
     Route: 065
  6. HERCEPTIN [Concomitant]
     Active Substance: TRASTUZUMAB
     Dosage: 6 MG/KG, UNK
     Route: 065
  7. PARAPLATIN [Concomitant]
     Active Substance: CARBOPLATIN
     Dosage: 948 MG, UNK

REACTIONS (2)
  - Psychological trauma [Unknown]
  - Alopecia [Recovering/Resolving]

NARRATIVE: CASE EVENT DATE: 20120901
